FAERS Safety Report 8346085-1 (Version None)
Quarter: 2012Q2

REPORT INFORMATION
  Report Type: 
  Country: None (occurrence: None)
  Receive Date: 20120507
  Receipt Date: 20120419
  Transmission Date: 20120825
  Serious: Yes (Other)
  Sender: FDA-Public Use
  Company Number: TPG2012A00720

PATIENT
  Age: 50 Year
  Sex: Female

DRUGS (4)
  1. LEVEMIR [Concomitant]
  2. PIOGLITAZONE HYDROCHLORIDE [Suspect]
     Indication: DIABETES MELLITUS
     Dosage: PIOGLITAZONE/METFORMIN 30/1700 MG PER ORAL
     Route: 048
     Dates: start: 20090126, end: 20110920
  3. APIDRA [Concomitant]
  4. METFORMIN HCL [Concomitant]

REACTIONS (2)
  - FALL [None]
  - FOOT FRACTURE [None]
